FAERS Safety Report 5032147-3 (Version None)
Quarter: 2006Q2

REPORT INFORMATION
  Report Type: 
  Country: None (occurrence: None)
  Receive Date: 20060619
  Receipt Date: 20060607
  Transmission Date: 20061013
  Serious: Yes (Disabling)
  Sender: FDA-Public Use
  Company Number: 2005090005

PATIENT
  Age: 52 Year
  Sex: Female

DRUGS (4)
  1. ASTELIN [Suspect]
     Indication: CHRONIC SINUSITIS
     Dosage: 1 SPRAY  TID,  IN
     Dates: start: 20050705, end: 20050701
  2. ASTELIN [Suspect]
     Indication: RHINITIS ALLERGIC
     Dosage: 1 SPRAY  TID,  IN
     Dates: start: 20050705, end: 20050701
  3. SYNTHROID [Concomitant]
  4. VYTORIN [Concomitant]

REACTIONS (4)
  - AGEUSIA [None]
  - ANOSMIA [None]
  - FEELING ABNORMAL [None]
  - NASAL DISORDER [None]
